FAERS Safety Report 8439460 (Version 5)
Quarter: 2014Q3

REPORT INFORMATION
  Report Type: Spontaneous
  Country: JP (occurrence: JP)
  Receive Date: 20120302
  Receipt Date: 20140905
  Transmission Date: 20150326
  Serious: Yes (Hospitalization, Other)
  Sender: FDA-Public Use
  Company Number: PHHY2010JP88350

PATIENT
  Age: 80 Year
  Sex: Male
  Weight: 44 kg

DRUGS (17)
  1. EXJADE [Suspect]
     Active Substance: DEFERASIROX
     Indication: IRON OVERLOAD
     Dosage: 875 MG, DAILY
     Route: 048
     Dates: start: 20090624, end: 20090722
  2. EXJADE [Suspect]
     Active Substance: DEFERASIROX
     Indication: MYELOFIBROSIS
     Dosage: 875 MG, DAILY
     Route: 048
     Dates: start: 20090729, end: 20090912
  3. PHENYTOIN. [Concomitant]
     Active Substance: PHENYTOIN
     Dosage: UNK UKN, UNK
  4. PHENOBAL [Concomitant]
     Active Substance: PHENOBARBITAL
     Dosage: UNK UKN, UNK
     Route: 048
     Dates: start: 20091001, end: 20091007
  5. ALEVIATIN [Concomitant]
     Active Substance: PHENYTOIN SODIUM
     Dosage: 150 MG, UNK
     Route: 048
     Dates: start: 20091001, end: 20091007
  6. EXJADE [Suspect]
     Active Substance: DEFERASIROX
     Dosage: 875 MG, DAILY
     Route: 048
     Dates: start: 20091007, end: 20091224
  7. EXJADE [Suspect]
     Active Substance: DEFERASIROX
     Dosage: 20 MG/KG, UNK
     Route: 048
  8. EXJADE [Suspect]
     Active Substance: DEFERASIROX
     Dosage: 20 MG/KG, UNK
     Route: 048
     Dates: end: 201007
  9. LASIX [Concomitant]
     Active Substance: FUROSEMIDE
     Dosage: 20 MG, UNK
     Route: 048
     Dates: start: 20090624, end: 20091224
  10. SITAFLOXACIN HYDRATE [Concomitant]
     Dosage: 100 MG, UNK
     Route: 048
     Dates: start: 20090916, end: 20090928
  11. MAGNESIUM OXIDE. [Concomitant]
     Active Substance: MAGNESIUM OXIDE
     Dosage: 3 G, UNK
     Route: 048
     Dates: start: 20090708, end: 20090911
  12. PRIMPERAN [Concomitant]
     Active Substance: METOCLOPRAMIDE HYDROCHLORIDE
     Dosage: 3 DF, UNK
     Route: 048
     Dates: start: 20090812, end: 20090911
  13. URIEF [Concomitant]
     Active Substance: SILODOSIN
     Dosage: 8 DF, UNK
     Route: 048
     Dates: start: 20090924, end: 20091007
  14. TAKEPRON [Concomitant]
     Active Substance: LANSOPRAZOLE
     Dosage: 15 MG, UNK
     Route: 048
     Dates: start: 20091001, end: 20091224
  15. PREDNISOLONE. [Concomitant]
     Active Substance: PREDNISOLONE
     Dosage: 10 MG, UNK
     Route: 048
     Dates: start: 20090624, end: 20091224
  16. MUCOSTA [Concomitant]
     Active Substance: REBAMIPIDE
     Dosage: 300 MG, UNK
     Route: 048
     Dates: start: 20090624, end: 20090911
  17. LASIX [Concomitant]
     Active Substance: FUROSEMIDE
     Dosage: 20 MG, UNK
     Route: 048

REACTIONS (6)
  - White blood cell count increased [Unknown]
  - Nausea [Recovering/Resolving]
  - Pneumonia [Recovered/Resolved]
  - Urinary tract infection [Recovering/Resolving]
  - Hypotension [Recovered/Resolved]
  - Diarrhoea [Recovered/Resolved]

NARRATIVE: CASE EVENT DATE: 20090722
